FAERS Safety Report 9982134 (Version 1)
Quarter: 2014Q1

REPORT INFORMATION
  Report Type: Spontaneous
  Country: US (occurrence: None)
  Receive Date: 20140306
  Receipt Date: 20140306
  Transmission Date: 20141002
  Serious: Yes (Hospitalization)
  Sender: FDA-Public Use
  Company Number: None

PATIENT
  Age: 40 Year
  Sex: Male
  Weight: 82.6 kg

DRUGS (2)
  1. OXYCODONE [Suspect]
     Indication: PAIN
     Dosage: 20 MG PRN PO
     Route: 048
     Dates: start: 20130818, end: 20140101
  2. HYDROMORPHONE [Suspect]
     Dosage: 2 MG PRN PO
     Route: 048
     Dates: start: 20130429

REACTIONS (2)
  - Drug withdrawal syndrome [None]
  - Crohn^s disease [None]
